FAERS Safety Report 26171533 (Version 1)
Quarter: 2025Q4

REPORT INFORMATION
  Report Type: Spontaneous
  Country: US (occurrence: US)
  Receive Date: 20251217
  Receipt Date: 20251217
  Transmission Date: 20260117
  Serious: No
  Sender: BRISTOL-MYERS SQUIBB COMPANY
  Company Number: US-BRISTOL-MYERS SQUIBB COMPANY-2025-169382

PATIENT
  Age: 72 Year
  Sex: Male
  Weight: 102.06 kg

DRUGS (6)
  1. ELIQUIS [Suspect]
     Active Substance: APIXABAN
     Indication: Atrial fibrillation
     Route: 048
     Dates: start: 20251111
  2. ELIQUIS [Suspect]
     Active Substance: APIXABAN
     Indication: Atrial flutter
  3. ASPIRIN [Concomitant]
     Active Substance: ASPIRIN
     Indication: Product used for unknown indication
  4. LUTEIN [Concomitant]
     Active Substance: LUTEIN
     Indication: Product used for unknown indication
  5. ROSUVASTATIN [Concomitant]
     Active Substance: ROSUVASTATIN
     Indication: Product used for unknown indication
  6. Zenathin [Concomitant]
     Indication: Product used for unknown indication

REACTIONS (2)
  - Product storage error [Unknown]
  - Cardiac disorder [Unknown]

NARRATIVE: CASE EVENT DATE: 20251208
